FAERS Safety Report 5588176-4 (Version None)
Quarter: 2008Q1

REPORT INFORMATION
  Report Type: 
  Country: None (occurrence: None)
  Receive Date: 20080111
  Receipt Date: 20080107
  Transmission Date: 20080703
  Serious: Yes (Other)
  Sender: FDA-Public Use
  Company Number: US-ASTRAZENECA-2008UW00402

PATIENT
  Sex: Female

DRUGS (2)
  1. ARIMIDEX [Suspect]
     Indication: BREAST CANCER
     Route: 048
  2. EPOGEN [Concomitant]

REACTIONS (5)
  - BONE MARROW DISORDER [None]
  - FALL [None]
  - HAEMOGLOBIN DECREASED [None]
  - PELVIC FRACTURE [None]
  - RED BLOOD CELL ABNORMALITY [None]
